FAERS Safety Report 25299405 (Version 1)
Quarter: 2025Q2

REPORT INFORMATION
  Report Type: Spontaneous
  Country: CN (occurrence: CN)
  Receive Date: 20250512
  Receipt Date: 20250512
  Transmission Date: 20250717
  Serious: Yes (Life-Threatening, Other)
  Sender: NOVITIUM PHARMA
  Company Number: CN-NOVITIUMPHARMA-2025CNNVP01136

PATIENT
  Age: 66 Year
  Sex: Female

DRUGS (16)
  1. PREDNISONE [Suspect]
     Active Substance: PREDNISONE
     Indication: Follicular lymphoma
     Dates: start: 20240319
  2. PREDNISONE [Suspect]
     Active Substance: PREDNISONE
     Indication: Diffuse large B-cell lymphoma stage III
  3. RITUXIMAB [Concomitant]
     Active Substance: RITUXIMAB
     Dates: start: 20231212
  4. RITUXIMAB [Concomitant]
     Active Substance: RITUXIMAB
     Dates: start: 20240319
  5. RITUXIMAB [Concomitant]
     Active Substance: RITUXIMAB
  6. CYCLOPHOSPHAMIDE [Concomitant]
     Active Substance: CYCLOPHOSPHAMIDE
     Dates: start: 20240319
  7. CYCLOPHOSPHAMIDE [Concomitant]
     Active Substance: CYCLOPHOSPHAMIDE
  8. DOXORUBICIN [Concomitant]
     Active Substance: DOXORUBICIN
     Dates: start: 20240319
  9. DOXORUBICIN [Concomitant]
     Active Substance: DOXORUBICIN
  10. POLATUZUMAB VEDOTIN [Concomitant]
     Active Substance: POLATUZUMAB VEDOTIN
     Dates: start: 20240319
  11. POLATUZUMAB VEDOTIN [Concomitant]
     Active Substance: POLATUZUMAB VEDOTIN
  12. BENDAMUSTINE [Concomitant]
     Active Substance: BENDAMUSTINE
     Dates: start: 20231212
  13. GLOFITAMAB [Concomitant]
     Active Substance: GLOFITAMAB
     Dates: start: 20240501
  14. GLOFITAMAB [Concomitant]
     Active Substance: GLOFITAMAB
  15. GLOFITAMAB [Concomitant]
     Active Substance: GLOFITAMAB
  16. LENALIDOMIDE [Concomitant]
     Active Substance: LENALIDOMIDE
     Indication: Product used for unknown indication

REACTIONS (2)
  - Neutropenia [Recovered/Resolved]
  - Drug ineffective [Unknown]
